FAERS Safety Report 16700789 (Version 1)
Quarter: 2019Q3

REPORT INFORMATION
  Report Type: Spontaneous
  Country: CA (occurrence: CA)
  Receive Date: 20190814
  Receipt Date: 20190814
  Transmission Date: 20191004
  Serious: Yes (Other)
  Sender: FDA-Public Use
  Company Number: CA-TEVA-2019-CA-1091641

PATIENT
  Age: 50 Year
  Sex: Male

DRUGS (3)
  1. OXYBUTYNIN. [Suspect]
     Active Substance: OXYBUTYNIN CHLORIDE
     Indication: CYSTITIS
     Route: 065
  2. FLUTICASONE FUROATE/UMECLIDINIUM BROMIDE/VILANTEROL TRIFENATATE [Interacting]
     Active Substance: FLUTICASONE FUROATE\UMECLIDINIUM BROMIDE\VILANTEROL TRIFENATATE
     Route: 065
  3. OXYBUTYNIN. [Interacting]
     Active Substance: OXYBUTYNIN CHLORIDE
     Indication: ABDOMINAL INFECTION
     Route: 065

REACTIONS (8)
  - Tremor [Unknown]
  - Drug interaction [Unknown]
  - Constipation [Unknown]
  - Cystitis [Unknown]
  - Dry mouth [Unknown]
  - Abdominal infection [Unknown]
  - Dysphagia [Unknown]
  - Lung disorder [Unknown]
